FAERS Safety Report 6785875-3 (Version None)
Quarter: 2010Q2

REPORT INFORMATION
  Report Type: 
  Country: None (occurrence: None)
  Receive Date: 20100623
  Receipt Date: 20060511
  Transmission Date: 20101027
  Serious: Yes (Death)
  Sender: FDA-Public Use
  Company Number: DE-PFIZER INC-2010076322

PATIENT
  Age: 81 Year
  Sex: Male

DRUGS (4)
  1. ARGATROBAN [Suspect]
     Dosage: 0.6 UG/KG, 1 IN 1 MIN
     Dates: start: 20060316
  2. ARGATROBAN [Suspect]
     Dosage: 2 UG/KG, 1 IN 1 HR
     Dates: start: 20060317
  3. ARGATROBAN [Suspect]
     Dosage: 0.1 - 0.3 UG/KG/MIN
     Dates: start: 20060318, end: 20060318
  4. CEFAZOLIN [Concomitant]
     Dosage: UNK
     Dates: start: 20060317

REACTIONS (1)
  - HYPOXIC ENCEPHALOPATHY [None]
